FAERS Safety Report 22647279 (Version 2)
Quarter: 2023Q2

REPORT INFORMATION
  Report Type: Spontaneous
  Country: JP (occurrence: JP)
  Receive Date: 20230627
  Receipt Date: 20230630
  Transmission Date: 20230721
  Serious: Yes (Other)
  Sender: FDA-Public Use
  Company Number: JP-BRISTOL-MYERS SQUIBB COMPANY-2023-073887

PATIENT
  Age: 73 Year
  Sex: Male
  Weight: 66.9 kg

DRUGS (5)
  1. YERVOY [Suspect]
     Active Substance: IPILIMUMAB
     Indication: Non-small cell lung cancer
     Dosage: NUMBER OF YERVOY: 12
     Route: 041
     Dates: start: 20211102, end: 20230320
  2. OPDIVO [Suspect]
     Active Substance: NIVOLUMAB
     Indication: Non-small cell lung cancer
     Dosage: NUMBER OF OPDIVO: 23
     Route: 041
     Dates: start: 20211102, end: 20230320
  3. CISPLATIN [Suspect]
     Active Substance: CISPLATIN
     Indication: Non-small cell lung cancer
     Dates: end: 202301
  4. CARBOPLATIN [Concomitant]
     Active Substance: CARBOPLATIN
     Indication: Non-small cell lung cancer
     Dosage: 2 COURSES
     Dates: start: 20211102, end: 20211125
  5. PEMETREXED [Concomitant]
     Active Substance: PEMETREXED
     Indication: Non-small cell lung cancer
     Dosage: 2 COURSES
     Dates: start: 20211102, end: 20211125

REACTIONS (5)
  - Pyrexia [Recovering/Resolving]
  - Blood lactate dehydrogenase increased [Unknown]
  - Legionella infection [Recovering/Resolving]
  - Rash [Unknown]
  - Legionella test positive [Recovering/Resolving]

NARRATIVE: CASE EVENT DATE: 20221108
